FAERS Safety Report 8179470-1 (Version None)
Quarter: 2012Q1

REPORT INFORMATION
  Report Type: 
  Country: None (occurrence: None)
  Receive Date: 20120302
  Receipt Date: 20120221
  Transmission Date: 20120608
  Serious: Yes (Hospitalization)
  Sender: FDA-Public Use
  Company Number: US-JNJFOC-20110302873

PATIENT
  Sex: Male
  Weight: 77.11 kg

DRUGS (5)
  1. INVEGA SUSTENNA [Suspect]
     Route: 030
     Dates: start: 20110215, end: 20110201
  2. INVEGA [Suspect]
     Indication: SCHIZOPHRENIA
     Route: 048
  3. INVEGA [Suspect]
     Route: 048
  4. INVEGA SUSTENNA [Suspect]
     Indication: SCHIZOPHRENIA, DISORGANISED TYPE
     Route: 030
     Dates: start: 20110208
  5. UNSPECIFIED GENERIC DRUG [Concomitant]
     Indication: ASTHMA
     Route: 055

REACTIONS (14)
  - PYREXIA [None]
  - INJECTION SITE ERYTHEMA [None]
  - SCHIZOPHRENIA [None]
  - PRODUCT QUALITY ISSUE [None]
  - POOR QUALITY DRUG ADMINISTERED [None]
  - STAPHYLOCOCCAL INFECTION [None]
  - PAIN IN EXTREMITY [None]
  - PARANOIA [None]
  - PAIN [None]
  - DRUG ADMINISTERED AT INAPPROPRIATE SITE [None]
  - FATIGUE [None]
  - INJECTION SITE CELLULITIS [None]
  - REGRESSIVE BEHAVIOUR [None]
  - PRODUCT CONTAINER ISSUE [None]
